FAERS Safety Report 6542506-5 (Version None)
Quarter: 2010Q1

REPORT INFORMATION
  Report Type: 
  Country: None (occurrence: None)
  Receive Date: 20100119
  Receipt Date: 20100113
  Transmission Date: 20100710
  Serious: Yes (Other)
  Sender: FDA-Public Use
  Company Number: US-PFIZER INC-2009294862

PATIENT
  Sex: Male

DRUGS (13)
  1. XALATAN [Suspect]
     Indication: GLAUCOMA
     Dosage: ONE DROP IN EACH EYE, 1X/DAY
     Route: 047
     Dates: start: 20090609, end: 20090610
  2. ACETYLSALICYLIC ACID [Concomitant]
  3. PLAVIX [Concomitant]
  4. ZOCOR [Concomitant]
  5. METOPROLOL TARTRATE [Concomitant]
  6. NITROGLYCERIN [Concomitant]
  7. ZYRTEC [Concomitant]
  8. LOVAZA [Concomitant]
  9. RANITIDINE [Concomitant]
  10. MULTIVITAMIN [Concomitant]
  11. GINKGO BILOBA [Concomitant]
  12. GLUCOSAMINE [Concomitant]
  13. ONE-A-DAY [Concomitant]

REACTIONS (2)
  - MACULAR OEDEMA [None]
  - VISUAL ACUITY REDUCED [None]
